FAERS Safety Report 21044378 (Version 1)
Quarter: 2022Q3

REPORT INFORMATION
  Report Type: Spontaneous
  Country: US (occurrence: None)
  Receive Date: 20220705
  Receipt Date: 20220705
  Transmission Date: 20221026
  Serious: Yes (Other)
  Sender: FDA-Public Use
  Company Number: None

PATIENT
  Age: 22 Year
  Sex: Female
  Weight: 54.43 kg

DRUGS (2)
  1. ETHINYL ESTRADIOL\NORGESTIMATE [Suspect]
     Active Substance: ETHINYL ESTRADIOL\NORGESTIMATE
     Indication: Menstruation irregular
     Dosage: FREQUENCY : DAILY;?
     Route: 048
     Dates: start: 20220617
  2. JUNEL FE 1/20 [Suspect]
     Active Substance: ETHINYL ESTRADIOL\NORETHINDRONE ACETATE
     Indication: Menstruation irregular
     Dosage: OTHER STRENGTH : 1/20 MG/UG;?FREQUENCY : DAILY;?
     Route: 048
     Dates: start: 20190911

REACTIONS (2)
  - Weight increased [None]
  - Discomfort [None]

NARRATIVE: CASE EVENT DATE: 20220705
